FAERS Safety Report 9412859 (Version 1)
Quarter: 2013Q3

REPORT INFORMATION
  Report Type: Spontaneous
  Country: RS (occurrence: RS)
  Receive Date: 20130722
  Receipt Date: 20130722
  Transmission Date: 20140515
  Serious: Yes (Other)
  Sender: FDA-Public Use
  Company Number: PHHY2013RS075976

PATIENT
  Age: 11 Year
  Sex: Female

DRUGS (2)
  1. METHOTREXATE [Suspect]
     Indication: JUVENILE IDIOPATHIC ARTHRITIS
     Dosage: 2.5 MG, QID
     Route: 048
     Dates: start: 201004, end: 201212
  2. FOLAN [Concomitant]
     Dosage: 5 MG, UNK
     Route: 048

REACTIONS (3)
  - Hepatic enzyme increased [Recovering/Resolving]
  - Blood creatine phosphokinase increased [Recovering/Resolving]
  - Hepatitis [Recovering/Resolving]
